FAERS Safety Report 4355960-4 (Version None)
Quarter: 2004Q2

REPORT INFORMATION
  Report Type: 
  Country: None (occurrence: None)
  Receive Date: 20040505
  Receipt Date: 20040427
  Transmission Date: 20050107
  Serious: Yes (Other)
  Sender: FDA-Public Use
  Company Number: 200412077BCC

PATIENT
  Age: 86 Year
  Sex: Female
  Weight: 72.5755 kg

DRUGS (3)
  1. ALEVE [Suspect]
     Dosage: 220 MG, QID, ORAL
     Route: 048
     Dates: start: 20040420, end: 20040427
  2. ATIVAN [Concomitant]
  3. BLOOD PRESSURE PILL [Concomitant]

REACTIONS (2)
  - ABDOMINAL PAIN UPPER [None]
  - VAGINAL HAEMORRHAGE [None]
